FAERS Safety Report 20579239 (Version 1)
Quarter: 2022Q1

REPORT INFORMATION
  Report Type: Spontaneous
  Country: US (occurrence: US)
  Receive Date: 20220310
  Receipt Date: 20220310
  Transmission Date: 20220423
  Serious: No
  Sender: FDA-Public Use
  Company Number: US-PFIZER INC-2021685869

PATIENT
  Age: 68 Year
  Sex: Male

DRUGS (1)
  1. INLYTA [Suspect]
     Active Substance: AXITINIB
     Indication: Bone neoplasm
     Dosage: 3 MG, 2X/DAY (1MG/TAKE 3 TABLETS BY MOUTH TWICE A DAY)
     Route: 048

REACTIONS (4)
  - Hypoaesthesia oral [Unknown]
  - Hypoaesthesia [Unknown]
  - Dry mouth [Unknown]
  - Dry skin [Unknown]
